FAERS Safety Report 8926146 (Version 2)
Quarter: 2012Q4

REPORT INFORMATION
  Report Type: 
  Country: DE (occurrence: FR)
  Receive Date: 20121127
  Receipt Date: 20121221
  Transmission Date: 20130627
  Serious: Yes (Hospitalization)
  Sender: FDA-Public Use
  Company Number: FR-BRISTOL-MYERS SQUIBB COMPANY-17137258

PATIENT
  Age: 68 Year
  Sex: Male

DRUGS (11)
  1. ETOPOPHOS [Suspect]
     Indication: SMALL CELL LUNG CANCER METASTATIC
     Route: 042
     Dates: start: 20120620, end: 20120917
  2. GLUCOPHAGE TABS 1000 MG [Suspect]
     Route: 048
  3. ADRIBLASTINE [Suspect]
     Route: 042
     Dates: start: 20120917, end: 20120917
  4. CARBOPLATINE [Suspect]
     Indication: SMALL CELL LUNG CANCER METASTATIC
     Route: 042
     Dates: start: 20120620, end: 20120820
  5. COVERSYL [Suspect]
     Route: 048
  6. TEMERIT [Suspect]
     Route: 048
  7. LERCAN [Suspect]
     Route: 048
  8. TAHOR [Suspect]
     Route: 048
  9. PLAVIX [Suspect]
     Route: 048
  10. NOVONORM [Suspect]
     Route: 048
  11. ENDOXAN [Suspect]
     Route: 042
     Dates: start: 20120917, end: 20120917

REACTIONS (2)
  - Sinus arrhythmia [Recovered/Resolved with Sequelae]
  - Syncope [Recovered/Resolved]
